FAERS Safety Report 9056044 (Version 2)
Quarter: 2013Q1

REPORT INFORMATION
  Report Type: Spontaneous
  Country: US (occurrence: US)
  Receive Date: 20130205
  Receipt Date: 20130219
  Transmission Date: 20140127
  Serious: No
  Sender: FDA-Public Use
  Company Number: US-JNJFOC-20130200129

PATIENT
  Age: 58 Year
  Sex: Male
  Weight: 102.06 kg

DRUGS (3)
  1. MYLANTA [Suspect]
     Indication: ANTACID THERAPY
     Dosage: A LOT OF TABLETS WHEN NEEDED
     Route: 065
     Dates: start: 19870130, end: 20091230
  2. MYLANTA [Suspect]
     Indication: DYSPEPSIA
     Dosage: A LOT OF TABLETS WHEN NEEDED
     Route: 065
     Dates: start: 19870130, end: 20091230
  3. NEXIUM [Concomitant]
     Route: 065

REACTIONS (2)
  - Oesophageal disorder [Unknown]
  - Drug ineffective [Unknown]
